FAERS Safety Report 12189454 (Version 3)
Quarter: 2016Q3

REPORT INFORMATION
  Report Type: Spontaneous
  Country: US (occurrence: US)
  Receive Date: 20160318
  Receipt Date: 20160722
  Transmission Date: 20161109
  Serious: Yes (Other)
  Sender: FDA-Public Use
  Company Number: US-JNJFOC-20160313008

PATIENT
  Age: 52 Year
  Sex: Female
  Weight: 55.79 kg

DRUGS (2)
  1. ZYRTEC ALLERGY [Suspect]
     Active Substance: CETIRIZINE HYDROCHLORIDE
     Route: 048
  2. ZYRTEC ALLERGY [Suspect]
     Active Substance: CETIRIZINE HYDROCHLORIDE
     Indication: MULTIPLE ALLERGIES
     Dosage: 24 HOUR RELIEF
     Route: 048
     Dates: start: 20160312, end: 20160312

REACTIONS (12)
  - Somnolence [Recovered/Resolved]
  - Urticaria [Recovered/Resolved]
  - Syncope [None]
  - Fall [Recovered/Resolved]
  - Dizziness [Recovered/Resolved]
  - Loss of consciousness [Recovered/Resolved]
  - Musculoskeletal pain [Recovered/Resolved]
  - Feeling abnormal [Recovered/Resolved]
  - Contusion [None]
  - Headache [Recovered/Resolved]
  - Rash macular [Recovered/Resolved]
  - Product quality issue [None]

NARRATIVE: CASE EVENT DATE: 201603
